FAERS Safety Report 16658634 (Version 1)
Quarter: 2019Q3

REPORT INFORMATION
  Report Type: Spontaneous
  Country: RW (occurrence: RW)
  Receive Date: 20190801
  Receipt Date: 20190801
  Transmission Date: 20191004
  Serious: Yes (Life-Threatening)
  Sender: FDA-Public Use
  Company Number: RW-B. BRAUN MEDICAL INC.-2071695

PATIENT
  Age: 26 Year
  Sex: Female
  Weight: 60 kg

DRUGS (1)
  1. BUPIVACAINE. [Suspect]
     Active Substance: BUPIVACAINE
     Route: 050
     Dates: start: 20190618, end: 20190618

REACTIONS (2)
  - Seizure [Unknown]
  - Hypoxia [Unknown]

NARRATIVE: CASE EVENT DATE: 20190618
